FAERS Safety Report 5352576-8 (Version None)
Quarter: 2007Q2

REPORT INFORMATION
  Report Type: 
  Country: None (occurrence: None)
  Receive Date: 20070518
  Receipt Date: 20060706
  Transmission Date: 20071010
  Serious: Yes (Hospitalization)
  Sender: FDA-Public Use
  Company Number: Q06-030

PATIENT
  Age: 61 Year
  Sex: Male
  Weight: 85.7298 kg

DRUGS (15)
  1. SAMARIUM [Suspect]
     Indication: PROSTATE CANCER
     Dosage: 1MCI/KG IV
     Route: 042
     Dates: start: 20040715
  2. SAMARIUM [Suspect]
     Indication: PROSTATE CANCER
     Dosage: 1MCI/KG IV
     Route: 042
     Dates: start: 20041007
  3. ZOMETA [Suspect]
     Indication: PROSTATE CANCER
     Dosage: 4MG IV
     Route: 042
     Dates: start: 20040716
  4. ZOMETA [Suspect]
     Indication: PROSTATE CANCER
     Dosage: 4MG IV
     Route: 042
     Dates: start: 20040810
  5. ZOMETA [Suspect]
     Indication: PROSTATE CANCER
     Dosage: 4MG IV
     Route: 042
     Dates: start: 20040907
  6. ZOMETA [Suspect]
     Indication: PROSTATE CANCER
     Dosage: 4MG IV
     Route: 042
     Dates: start: 20041007
  7. ZOMETA [Suspect]
     Indication: PROSTATE CANCER
     Dosage: 4MG IV
     Route: 042
     Dates: start: 20041102
  8. OXYCONTIN [Concomitant]
  9. FLOMAX [Concomitant]
  10. RITALIN [Concomitant]
  11. ATIVAN [Concomitant]
  12. LEXAPRO [Concomitant]
  13. ATARAX [Concomitant]
  14. VALIUM [Concomitant]
  15. COMPAZINE [Concomitant]

REACTIONS (1)
  - CHEST PAIN [None]
